FAERS Safety Report 13040304 (Version 1)
Quarter: 2016Q4

REPORT INFORMATION
  Report Type: Report from Study
  Country: US (occurrence: US)
  Receive Date: 20161219
  Receipt Date: 20161219
  Transmission Date: 20170207
  Serious: Yes (Hospitalization, Other)
  Sender: FDA-Public Use
  Company Number: US-MALLINCKRODT-T201606391

PATIENT
  Sex: Female

DRUGS (1)
  1. REPOSITORY CORTICOTROPIN INJECTION [Suspect]
     Active Substance: CORTICOTROPIN
     Indication: RHEUMATOID ARTHRITIS
     Dosage: 80 UNITS / 1 ML; ALTERNATING 2X AND 3X WEEK
     Route: 058
     Dates: start: 20150601

REACTIONS (3)
  - Muscle rupture [Recovering/Resolving]
  - Exostosis [Recovering/Resolving]
  - Procedural pain [Not Recovered/Not Resolved]
